FAERS Safety Report 14757062 (Version 1)
Quarter: 2018Q2

REPORT INFORMATION
  Report Type: Spontaneous
  Country: US (occurrence: US)
  Receive Date: 20180408
  Receipt Date: 20180408
  Transmission Date: 20180711
  Serious: Yes (Disabling)
  Sender: FDA-Public Use
  Company Number: None

PATIENT
  Age: 83 Year
  Sex: Male
  Weight: 83.25 kg

DRUGS (17)
  1. XARELTO [Suspect]
     Active Substance: RIVAROXABAN
     Indication: THROMBOSIS IN DEVICE
     Route: 048
     Dates: start: 20180312
  2. RED RICE YEAST [Concomitant]
     Active Substance: DIETARY SUPPLEMENT
  3. VITAMIN B6 [Concomitant]
     Active Substance: PYRIDOXINE HYDROCHLORIDE
  4. ALPHA LIPOIC ACID [Concomitant]
     Active Substance: .ALPHA.-LIPOIC ACID
  5. DAPTOMYACIN [Concomitant]
  6. SILDENAFIL. [Concomitant]
     Active Substance: SILDENAFIL
  7. MATURE^ MULTIVITAMEN [Concomitant]
  8. LEVOTHYRONINE [Concomitant]
  9. CEFTRIAXONE. [Concomitant]
     Active Substance: CEFTRIAXONE
  10. ACEYTIL L CARNITINE [Concomitant]
  11. SIMVASTATIN. [Concomitant]
     Active Substance: SIMVASTATIN
  12. ALBUTEROL. [Concomitant]
     Active Substance: ALBUTEROL
  13. SLO NIACIN [Concomitant]
  14. ASPIRIN. [Concomitant]
     Active Substance: ASPIRIN
  15. VITAMIN E [Concomitant]
     Active Substance: .ALPHA.-TOCOPHEROL
  16. VITAMIN B COMPLEX [Concomitant]
     Active Substance: CYANOCOBALAMIN\DEXPANTHENOL\NIACINAMIDE\PYRIDOXINE HYDROCHLORIDE\RIBOFLAVIN 5^-PHOSPHATE SODIUM\THIAMINE HYDROCHLORIDE\VITAMIN B COMPLEX
  17. GLUCOSAMIN/CHONDROITIN [Concomitant]

REACTIONS (3)
  - Malaise [None]
  - Infection [None]
  - Thrombosis in device [None]

NARRATIVE: CASE EVENT DATE: 20180404
